FAERS Safety Report 9439962 (Version 2)
Quarter: 2013Q3

REPORT INFORMATION
  Report Type: Spontaneous
  Country: US (occurrence: US)
  Receive Date: 20130805
  Receipt Date: 20130809
  Transmission Date: 20140515
  Serious: Yes (Other)
  Sender: FDA-Public Use
  Company Number: US-UCBSA-042913

PATIENT
  Age: 29 Year
  Sex: Female
  Weight: 49.8 kg

DRUGS (3)
  1. CIMZIA [Suspect]
     Indication: CROHN^S DISEASE
     Route: 058
     Dates: start: 201102
  2. 6-MP [Suspect]
     Dosage: UNSPECIFIED DOSE
     Dates: end: 2011
  3. ASACOL [Concomitant]

REACTIONS (11)
  - Premature delivery [Unknown]
  - Pancreatitis [Recovered/Resolved]
  - Crohn^s disease [Recovered/Resolved]
  - Pregnancy [Recovered/Resolved]
  - Urinary tract infection [Recovered/Resolved]
  - Vaginal haemorrhage [Recovered/Resolved]
  - Irritable bowel syndrome [Not Recovered/Not Resolved]
  - Menorrhagia [Not Recovered/Not Resolved]
  - Red blood cell count decreased [Not Recovered/Not Resolved]
  - Weight decreased [Recovered/Resolved]
  - Arthritis [Recovered/Resolved]
